FAERS Safety Report 6453820-6 (Version None)
Quarter: 2009Q4

REPORT INFORMATION
  Report Type: 
  Country: None (occurrence: None)
  Receive Date: 20091124
  Receipt Date: 20091116
  Transmission Date: 20100525
  Serious: Yes (Other)
  Sender: FDA-Public Use
  Company Number: US-ASTRAZENECA-2009SE26563

PATIENT
  Sex: Female

DRUGS (1)
  1. TENORMIN [Suspect]

REACTIONS (1)
  - HYPERTENSION [None]
